FAERS Safety Report 9804022 (Version 1)
Quarter: 2014Q1

REPORT INFORMATION
  Report Type: Spontaneous
  Country: US (occurrence: None)
  Receive Date: 20140103
  Receipt Date: 20140103
  Transmission Date: 20141002
  Serious: Yes (Hospitalization)
  Sender: FDA-Public Use
  Company Number: FK201305579

PATIENT
  Age: 73 Year
  Sex: 0

DRUGS (3)
  1. CLINDAMYCIN [Suspect]
     Indication: PNEUMONIA ASPIRATION
     Dosage: (NOT OTHERWISE SPECIFIED)
     Route: 042
  2. ZOSYN (PIP/TAZO) [Concomitant]
  3. LACTULOSE (LACTULOSE) [Concomitant]

REACTIONS (14)
  - Acute hepatic failure [None]
  - Acute respiratory distress syndrome [None]
  - Encephalopathy [None]
  - Haemoglobin decreased [None]
  - White blood cell count increased [None]
  - Neutrophil percentage increased [None]
  - Blood urea increased [None]
  - Blood sodium decreased [None]
  - Blood bicarbonate decreased [None]
  - Blood albumin decreased [None]
  - Prothrombin time prolonged [None]
  - International normalised ratio increased [None]
  - Weaning failure [None]
  - Liver injury [None]
